FAERS Safety Report 7706870-3 (Version None)
Quarter: 2011Q3

REPORT INFORMATION
  Report Type: 
  Country: None (occurrence: None)
  Receive Date: 20110824
  Receipt Date: 20110809
  Transmission Date: 20111222
  Serious: Yes (Other)
  Sender: FDA-Public Use
  Company Number: US-GLAXOSMITHKLINE-A0911675A

PATIENT
  Age: 73 Year
  Sex: Male

DRUGS (1)
  1. ROSIGLITAZONE MALEATE [Suspect]
     Indication: DIABETES MELLITUS
     Route: 048
     Dates: start: 20080601, end: 20090401

REACTIONS (3)
  - CHEST PAIN [None]
  - MYOCARDIAL ISCHAEMIA [None]
  - STENT PLACEMENT [None]
